FAERS Safety Report 24087978 (Version 1)
Quarter: 2024Q3

REPORT INFORMATION
  Report Type: Report from Study
  Country: CA (occurrence: CA)
  Receive Date: 20240715
  Receipt Date: 20240715
  Transmission Date: 20241017
  Serious: Yes (Hospitalization)
  Sender: ABBVIE
  Company Number: CA-ABBVIE-5838518

PATIENT
  Sex: Male

DRUGS (1)
  1. BOTOX [Suspect]
     Active Substance: ONABOTULINUMTOXINA
     Indication: Product used for unknown indication
     Dosage: TIME INTERVAL: AS NECESSARY: FREQUENCY -EVERY THREE MONTH
     Route: 030

REACTIONS (2)
  - Pancreatic disorder [Recovering/Resolving]
  - Weight decreased [Recovering/Resolving]
